FAERS Safety Report 17516273 (Version 3)
Quarter: 2022Q2

REPORT INFORMATION
  Report Type: Spontaneous
  Country: US (occurrence: US)
  Receive Date: 20200309
  Receipt Date: 20220506
  Transmission Date: 20220721
  Serious: No
  Sender: FDA-Public Use
  Company Number: US-KYOWAKIRIN-2020BKK003462

PATIENT

DRUGS (3)
  1. CRYSVITA [Suspect]
     Active Substance: BUROSUMAB-TWZA
     Indication: Hereditary hypophosphataemic rickets
     Dosage: 30 MG, 1X/4 WEEKS
     Route: 065
     Dates: start: 2019, end: 2019
  2. CRYSVITA [Suspect]
     Active Substance: BUROSUMAB-TWZA
     Indication: Hereditary hypophosphataemic rickets
     Dosage: 30 MG, 1X/4 WEEKS
     Route: 058
     Dates: start: 20210928
  3. CRYSVITA [Suspect]
     Active Substance: BUROSUMAB-TWZA
     Indication: Hereditary hypophosphataemic rickets
     Dosage: 20 MG, 1X/4 WEEKS
     Route: 058
     Dates: start: 20210928

REACTIONS (2)
  - Pain [Not Recovered/Not Resolved]
  - Feeling abnormal [Unknown]
